FAERS Safety Report 8089290-4 (Version None)
Quarter: 2012Q1

REPORT INFORMATION
  Report Type: 
  Country: None (occurrence: None)
  Receive Date: 20120128
  Receipt Date: 20110821
  Transmission Date: 20120608
  Serious: No
  Sender: FDA-Public Use
  Company Number: US-ABBOTT-11P-163-0720120-00

PATIENT
  Age: 51 Year
  Sex: Female

DRUGS (18)
  1. ALBUTEROL [Concomitant]
     Indication: ASTHMA
  2. RIFAMPIN [Concomitant]
     Indication: ANTIBIOTIC PROPHYLAXIS
  3. MIRAPEX [Concomitant]
     Indication: RESTLESS LEGS SYNDROME
  4. SINGULAIR [Concomitant]
     Indication: RESPIRATORY DISORDER
  5. PULMICORT-100 [Concomitant]
     Indication: ASTHMA
  6. HUMIRA [Suspect]
     Indication: PSORIASIS
     Dates: start: 20110124, end: 20110501
  7. ATENOLOL [Concomitant]
     Indication: HYPERTENSION
  8. METHYLPREDNISOLONE [Concomitant]
     Indication: RESPIRATORY DISORDER
  9. SIMVASTATIN [Concomitant]
     Indication: BLOOD CHOLESTEROL INCREASED
  10. GABAPENTIN [Concomitant]
     Indication: PAIN
  11. PROAIR HFA [Concomitant]
     Indication: ASTHMA
  12. LEVOTHYROXINE SODIUM [Concomitant]
     Indication: HYPOTHYROIDISM
  13. LITHIUM CARBONATE [Concomitant]
     Indication: ANXIETY
  14. LASIX [Concomitant]
     Indication: FLUID RETENTION
  15. ADVAIR DISKUS 100/50 [Concomitant]
     Indication: CHRONIC OBSTRUCTIVE PULMONARY DISEASE
  16. HYDROCODONE BITARTRATE [Concomitant]
     Indication: PAIN
     Dosage: 10/325
  17. PROAIR HFA [Concomitant]
     Indication: CHRONIC OBSTRUCTIVE PULMONARY DISEASE
  18. CYMBALTA [Concomitant]
     Indication: DEPRESSION

REACTIONS (1)
  - HEPATIC ENZYME INCREASED [None]
